FAERS Safety Report 7340912-2 (Version None)
Quarter: 2011Q1

REPORT INFORMATION
  Report Type: 
  Country: None (occurrence: None)
  Receive Date: 20110309
  Receipt Date: 20100428
  Transmission Date: 20110831
  Serious: No
  Sender: FDA-Public Use
  Company Number: US-ABBOTT-10P-163-0642223-00

PATIENT
  Sex: Female

DRUGS (3)
  1. LUPRON DEPOT [Suspect]
     Dosage: 3 DOSES GIVEN
     Route: 030
     Dates: start: 20090901
  2. NORETHINDRONE [Concomitant]
     Indication: ENDOMETRIOSIS
  3. LUPRON DEPOT [Suspect]
     Indication: ENDOMETRIOSIS
     Dosage: STOPPED AFTER 2 INJECTIONS WHEN PAIN WENT AWAY COMPLETELY.
     Route: 030
     Dates: start: 20050101, end: 20050101

REACTIONS (2)
  - DRUG INEFFECTIVE [None]
  - PAIN [None]
